FAERS Safety Report 15224749 (Version 3)
Quarter: 2019Q1

REPORT INFORMATION
  Report Type: Report from Study
  Country: None (occurrence: RO)
  Receive Date: 20180731
  Receipt Date: 20190225
  Transmission Date: 20190417
  Serious: Yes (Hospitalization, Other)
  Sender: FDA-Public Use
  Company Number: RO-ABBVIE-18K-135-2435396-00

PATIENT
  Age: 66 Year
  Sex: Female
  Weight: 75 kg

DRUGS (1)
  1. HUMIRA [Suspect]
     Active Substance: ADALIMUMAB
     Indication: ANKYLOSING SPONDYLITIS
     Route: 058
     Dates: start: 20130715, end: 201803

REACTIONS (3)
  - Obesity [Not Recovered/Not Resolved]
  - Nasal polyps [Recovered/Resolved]
  - Laryngeal cancer [Recovered/Resolved]

NARRATIVE: CASE EVENT DATE: 2014
